FAERS Safety Report 17075553 (Version 6)
Quarter: 2020Q4

REPORT INFORMATION
  Report Type: Spontaneous
  Country: US (occurrence: US)
  Receive Date: 20191126
  Receipt Date: 20201008
  Transmission Date: 20210113
  Serious: No
  Sender: FDA-Public Use
  Company Number: US-PFIZER INC-2019246524

PATIENT
  Age: 61 Year
  Sex: Female

DRUGS (1)
  1. AROMASIN [Suspect]
     Active Substance: EXEMESTANE
     Indication: BREAST CANCER
     Dosage: 25 MG, 1X/DAY
     Route: 048

REACTIONS (5)
  - Breast tenderness [Unknown]
  - Product dose omission issue [Unknown]
  - Pain [Unknown]
  - Road traffic accident [Unknown]
  - Illness [Unknown]
